FAERS Safety Report 9145268 (Version 4)
Quarter: 2014Q2

REPORT INFORMATION
  Report Type: Spontaneous
  Country: US (occurrence: US)
  Receive Date: 20130307
  Receipt Date: 20140401
  Transmission Date: 20141212
  Serious: Yes (Other)
  Sender: FDA-Public Use
  Company Number: US-AMGEN-USASP2013013032

PATIENT
  Age: 60 Year
  Sex: Female
  Weight: 59.8 kg

DRUGS (7)
  1. PROLIA [Suspect]
     Indication: OSTEOPOROSIS POSTMENOPAUSAL
     Dosage: 60 MG/ML, Q6MO
     Route: 058
     Dates: start: 20110824
  2. DURAGESIC                          /00070401/ [Concomitant]
     Dosage: 50 MUG, UNK
  3. XANAX [Concomitant]
     Dosage: UNK UNK, TID
  4. PERCOCET                           /00446701/ [Concomitant]
     Dosage: 325 MG, UNK
  5. SOMA [Concomitant]
     Dosage: 350 MG, UNK
  6. NEURONTIN [Concomitant]
  7. ZANTAC [Concomitant]
     Dosage: 150 MG, QD

REACTIONS (25)
  - Fall [Unknown]
  - Hand fracture [Unknown]
  - Head injury [Unknown]
  - Limb operation [Unknown]
  - Back injury [Unknown]
  - Device malfunction [Unknown]
  - Localised infection [Recovered/Resolved]
  - Gangrene [Recovered/Resolved]
  - Laceration [Unknown]
  - Malaise [Unknown]
  - Onychomadesis [Unknown]
  - Back disorder [Unknown]
  - Peripheral swelling [Unknown]
  - Pain [Unknown]
  - Walking aid user [Unknown]
  - Hypokalaemia [Recovered/Resolved]
  - Hyperglycaemia [Unknown]
  - Myalgia [Unknown]
  - Arthralgia [Unknown]
  - Bone pain [Unknown]
  - Nausea [Recovered/Resolved]
  - Localised oedema [Unknown]
  - Joint swelling [Unknown]
  - Blister [Recovered/Resolved]
  - Joint range of motion decreased [Recovered/Resolved]
